FAERS Safety Report 4500643-0 (Version None)
Quarter: 2004Q4

REPORT INFORMATION
  Report Type: 
  Country: None (occurrence: None)
  Receive Date: 20041109
  Receipt Date: 20041028
  Transmission Date: 20050328
  Serious: Yes (Hospitalization)
  Sender: FDA-Public Use
  Company Number: 2004084992

PATIENT
  Age: 69 Year
  Sex: Female
  Weight: 80.2867 kg

DRUGS (2)
  1. BENADRYL [Suspect]
     Dosage: ORAL
     Route: 048
     Dates: start: 20010101
  2. DRUG, UNSPECIFIED (DRUG, UNSPECIFIED) [Suspect]
     Dosage: DOSE UNSPECIFIED, UNKNOWN

REACTIONS (7)
  - ASTHMA [None]
  - COLLAPSE OF LUNG [None]
  - CONDITION AGGRAVATED [None]
  - CORONARY ARTERY THROMBOSIS [None]
  - LUNG INFECTION [None]
  - MYOCARDIAL INFARCTION [None]
  - PULMONARY OEDEMA [None]
